FAERS Safety Report 7086541-X (Version None)
Quarter: 2010Q4

REPORT INFORMATION
  Report Type: 
  Country: None (occurrence: None)
  Receive Date: 20101028
  Receipt Date: 20101019
  Transmission Date: 20110411
  Serious: Yes (Other)
  Sender: FDA-Public Use
  Company Number: 2010EU005515

PATIENT
  Age: 85 Year
  Sex: Female

DRUGS (1)
  1. PROTOPIC [Suspect]
     Indication: NEURODERMATITIS
     Dosage: 0.1 %, D, TOPICAL
     Route: 061
     Dates: start: 20090301, end: 20091101

REACTIONS (1)
  - B-CELL LYMPHOMA [None]
